FAERS Safety Report 20189025 (Version 1)
Quarter: 2021Q4

REPORT INFORMATION
  Report Type: Spontaneous
  Country: FR (occurrence: FR)
  Receive Date: 20211215
  Receipt Date: 20211215
  Transmission Date: 20220303
  Serious: Yes (Death)
  Sender: FDA-Public Use
  Company Number: FR-MYLANLABS-2021M1093138

PATIENT
  Age: 43 Year
  Sex: Male

DRUGS (5)
  1. OXALIPLATIN [Suspect]
     Active Substance: OXALIPLATIN
     Indication: Adenocarcinoma of colon
     Dosage: 85 MILLIGRAM/SQ. METER, CYCLE, 28 CYCLES WERE DELIVERED
     Route: 065
     Dates: start: 201809, end: 202004
  2. IRINOTECAN [Concomitant]
     Active Substance: IRINOTECAN
     Indication: Adenocarcinoma of colon
     Dosage: 180 MILLIGRAM/SQ. METER, CYCLE, 28 CYCLES WERE DELIVERED
     Route: 065
     Dates: start: 201809, end: 202004
  3. LEUCOVORIN [Concomitant]
     Active Substance: LEUCOVORIN
     Indication: Adenocarcinoma of colon
     Dosage: UNK
     Route: 042
     Dates: start: 201809
  4. FLUOROURACIL [Concomitant]
     Active Substance: FLUOROURACIL
     Indication: Adenocarcinoma of colon
     Dosage: UNK
     Route: 042
     Dates: start: 201809
  5. PANITUMUMAB [Concomitant]
     Active Substance: PANITUMUMAB
     Indication: Adenocarcinoma of colon
     Dosage: UNK
     Route: 065
     Dates: start: 201809

REACTIONS (2)
  - Venoocclusive liver disease [Fatal]
  - Hepatic failure [Fatal]

NARRATIVE: CASE EVENT DATE: 20200101
